FAERS Safety Report 14304820 (Version 1)
Quarter: 2017Q4

REPORT INFORMATION
  Report Type: Spontaneous
  Country: PH (occurrence: PH)
  Receive Date: 20171219
  Receipt Date: 20171219
  Transmission Date: 20180321
  Serious: Yes (Life-Threatening, Other)
  Sender: FDA-Public Use
  Company Number: PH-OTSUKA-JP-2013-13477

PATIENT
  Age: 26 Year
  Sex: Female
  Weight: 120 kg

DRUGS (2)
  1. ABILIFY [Suspect]
     Active Substance: ARIPIPRAZOLE
     Indication: ACUTE PSYCHOSIS
     Dosage: 15 MG, QD
     Route: 048
     Dates: start: 20130825, end: 20130830
  2. ABILIFY [Suspect]
     Active Substance: ARIPIPRAZOLE
     Indication: ACUTE PSYCHOSIS
     Dosage: 15 MG, QD
     Route: 048
     Dates: start: 20130825, end: 20130830

REACTIONS (4)
  - Hypotension [Unknown]
  - Sepsis [Unknown]
  - Acute kidney injury [Unknown]
  - Neuroleptic malignant syndrome [Unknown]

NARRATIVE: CASE EVENT DATE: 20130830
